FAERS Safety Report 9395098 (Version 2)
Quarter: 2013Q3

REPORT INFORMATION
  Report Type: Spontaneous
  Country: JP (occurrence: JP)
  Receive Date: 20130711
  Receipt Date: 20130723
  Transmission Date: 20140515
  Serious: Yes (Other)
  Sender: FDA-Public Use
  Company Number: JP-PFIZER INC-2013154164

PATIENT
  Age: 70 Year
  Sex: Female
  Weight: 55 kg

DRUGS (2)
  1. FOSPHENYTOIN SODIUM [Suspect]
     Indication: STATUS EPILEPTICUS
     Dosage: 750MG AT RATE OF 50 MG/MIN
     Route: 042
     Dates: start: 20130510, end: 20130510
  2. EXCEGRAN [Concomitant]
     Indication: EPILEPSY
     Dosage: UNK

REACTIONS (2)
  - Blood pressure decreased [Recovering/Resolving]
  - Respiratory failure [Unknown]
